FAERS Safety Report 8313139-5 (Version None)
Quarter: 2012Q2

REPORT INFORMATION
  Report Type: 
  Country: None (occurrence: None)
  Receive Date: 20120426
  Receipt Date: 20120419
  Transmission Date: 20120825
  Serious: Yes (Other)
  Sender: FDA-Public Use
  Company Number: US-PFIZER INC-2012029119

PATIENT
  Sex: Female

DRUGS (7)
  1. LYRICA [Suspect]
     Indication: FACIAL PAIN
  2. CARBAMAZEPINE [Concomitant]
     Indication: EPILEPSY
  3. LYRICA [Suspect]
     Indication: HEADACHE
  4. CARBAMAZEPINE [Concomitant]
     Indication: HEADACHE
     Dosage: UNK
  5. AMITRIPTYLINE [Concomitant]
     Dosage: UNK
  6. TRAMADOL [Concomitant]
     Indication: PAIN
     Dosage: UNK
  7. LYRICA [Suspect]
     Indication: PAIN IN EXTREMITY
     Dosage: UNK
     Dates: start: 20070101

REACTIONS (8)
  - EYELID DISORDER [None]
  - LARYNGITIS [None]
  - OROPHARYNGEAL PAIN [None]
  - HYPERSOMNIA [None]
  - HEARING IMPAIRED [None]
  - AUTOIMMUNE DISORDER [None]
  - INTERVERTEBRAL DISC DISORDER [None]
  - DRUG INEFFECTIVE [None]
